FAERS Safety Report 4725190-2 (Version None)
Quarter: 2005Q3

REPORT INFORMATION
  Report Type: 
  Country: None (occurrence: None)
  Receive Date: 20050721
  Receipt Date: 20050610
  Transmission Date: 20060218
  Serious: No
  Sender: FDA-Public Use
  Company Number: 2005SP001339

PATIENT
  Age: 92 Year
  Sex: Male
  Weight: 65.7716 kg

DRUGS (2)
  1. LUNESTA [Suspect]
     Indication: INSOMNIA
     Dosage: 1 MG, HS, ORAL ;   2 MG, HS, ORAL
     Route: 048
     Dates: start: 20050601, end: 20050601
  2. LUNESTA [Suspect]
     Indication: INSOMNIA
     Dosage: 1 MG, HS, ORAL ;   2 MG, HS, ORAL
     Route: 048
     Dates: start: 20050602, end: 20050601

REACTIONS (2)
  - DRUG INEFFECTIVE [None]
  - INSOMNIA [None]
